FAERS Safety Report 20700442 (Version 1)
Quarter: 2022Q2

REPORT INFORMATION
  Report Type: Spontaneous
  Country: US (occurrence: None)
  Receive Date: 20220410
  Receipt Date: 20220410
  Transmission Date: 20220721
  Serious: No
  Sender: FDA-Public Use
  Company Number: None

PATIENT
  Age: 49 Year
  Sex: Male
  Weight: 135.9 kg

DRUGS (1)
  1. REPATHA [Suspect]
     Active Substance: EVOLOCUMAB
     Indication: Blood cholesterol
     Dosage: OTHER QUANTITY : 1 INJECTION(S);?OTHER FREQUENCY : TWICE MONTHLY;?
     Route: 058
     Dates: start: 20220410

REACTIONS (2)
  - Blood pressure decreased [None]
  - Taste disorder [None]

NARRATIVE: CASE EVENT DATE: 20220410
